FAERS Safety Report 6264455-2 (Version None)
Quarter: 2009Q3

REPORT INFORMATION
  Report Type: 
  Country: None (occurrence: None)
  Receive Date: 20090710
  Receipt Date: 20090630
  Transmission Date: 20100115
  Serious: Yes (Death)
  Sender: FDA-Public Use
  Company Number: KR-MERCK-0906KOR00072

PATIENT
  Age: 70 Year
  Sex: Male

DRUGS (4)
  1. PRIMAXIN [Suspect]
     Indication: FEBRILE NEUTROPENIA
     Route: 065
  2. PRIMAXIN [Suspect]
     Indication: BACTERAEMIA
     Route: 065
  3. CEFEPIME [Concomitant]
     Indication: FEBRILE NEUTROPENIA
     Route: 065
  4. CEFEPIME [Concomitant]
     Indication: BACTERAEMIA
     Route: 065

REACTIONS (1)
  - CANDIDIASIS [None]
